FAERS Safety Report 8297614-8 (Version None)
Quarter: 2012Q2

REPORT INFORMATION
  Report Type: 
  Country: None (occurrence: None)
  Receive Date: 20120419
  Receipt Date: 20120319
  Transmission Date: 20120825
  Serious: Yes (Hospitalization)
  Sender: FDA-Public Use
  Company Number: US-B.I. PHARMACEUTICALS,INC./RIDGEFIELD-2012-BP-05190BP

PATIENT
  Sex: Female

DRUGS (6)
  1. DIGOXIN [Concomitant]
     Indication: CARDIAC DISORDER
     Dosage: 0.25 MG
     Route: 048
     Dates: start: 20110401
  2. PRADAXA [Suspect]
     Indication: ATRIAL FIBRILLATION
     Dosage: 300 MG
     Route: 048
     Dates: start: 20110401, end: 20120319
  3. LEVOTHYROXINE SODIUM [Concomitant]
     Route: 048
  4. PRADAXA [Suspect]
  5. METOPROLOL TARTRATE [Concomitant]
     Indication: CARDIAC DISORDER
     Dosage: 50 MG
     Route: 048
     Dates: start: 20110401
  6. LEVOTHYROXINE SODIUM [Concomitant]
     Indication: THYROID FUNCTION TEST ABNORMAL
     Route: 048
     Dates: start: 19970101

REACTIONS (10)
  - HEADACHE [None]
  - HAEMORRHAGE [None]
  - RASH [None]
  - TREMOR [None]
  - DYSPNOEA [None]
  - MUSCLE SPASMS [None]
  - WEIGHT DECREASED [None]
  - PRURITUS [None]
  - VISION BLURRED [None]
  - WEIGHT GAIN POOR [None]
